FAERS Safety Report 13542672 (Version 1)
Quarter: 2017Q2

REPORT INFORMATION
  Report Type: Spontaneous
  Country: US (occurrence: US)
  Receive Date: 20170512
  Receipt Date: 20170512
  Transmission Date: 20170830
  Serious: No
  Sender: FDA-Public Use
  Company Number: US-ROCHE-712855

PATIENT
  Sex: Male

DRUGS (2)
  1. OMEPRAZOLE. [Concomitant]
     Active Substance: OMEPRAZOLE
     Dosage: DAILY
     Route: 065
  2. AVASTIN [Suspect]
     Active Substance: BEVACIZUMAB
     Indication: PRESUMED OCULAR HISTOPLASMOSIS SYNDROME
     Route: 050

REACTIONS (9)
  - Paraesthesia [Not Recovered/Not Resolved]
  - Diplopia [Recovering/Resolving]
  - Hot flush [Unknown]
  - Dyspnoea [Unknown]
  - Injection site pain [Recovered/Resolved]
  - Drug therapy [Unknown]
  - Muscle twitching [Unknown]
  - Anxiety [Recovering/Resolving]
  - Sinus disorder [Unknown]
